FAERS Safety Report 7645457-8 (Version None)
Quarter: 2011Q3

REPORT INFORMATION
  Report Type: 
  Country: None (occurrence: None)
  Receive Date: 20110729
  Receipt Date: 20110718
  Transmission Date: 20111222
  Serious: Yes (Other)
  Sender: FDA-Public Use
  Company Number: US-ELI_LILLY_AND_COMPANY-US201107005825

PATIENT
  Age: 74 Year
  Sex: Female

DRUGS (8)
  1. ENTERIC ASPIRIN [Concomitant]
     Dosage: 325 MG, UNK
  2. TORSEMIDE [Concomitant]
  3. INSULIN [Concomitant]
  4. LISINOPRIL [Concomitant]
  5. VERAPAMIL [Concomitant]
  6. GABAPENTIN [Concomitant]
  7. CYMBALTA [Suspect]
     Indication: NEUROPATHY PERIPHERAL
     Dosage: 60 MG, QD
  8. CYMBALTA [Suspect]
     Dosage: 60 MG, QD
     Dates: start: 20110101

REACTIONS (5)
  - GAIT DISTURBANCE [None]
  - DRUG EFFECT DECREASED [None]
  - TRANSIENT ISCHAEMIC ATTACK [None]
  - HYPOAESTHESIA [None]
  - FALL [None]
